FAERS Safety Report 7676418-0 (Version None)
Quarter: 2011Q3

REPORT INFORMATION
  Report Type: 
  Country: None (occurrence: None)
  Receive Date: 20110811
  Receipt Date: 20110803
  Transmission Date: 20111222
  Serious: Yes (Death, Life-Threatening, Hospitalization)
  Sender: FDA-Public Use
  Company Number: DE-CELGENEUS-062-21880-09050806

PATIENT
  Age: 72 Year
  Sex: Female
  Weight: 75 kg

DRUGS (7)
  1. LEVOFLOXACIN [Concomitant]
     Route: 065
     Dates: start: 20090524
  2. METOPROLOL SUCCINATE [Concomitant]
     Dosage: 47.5 MILLIGRAM
     Route: 065
  3. NORVASC [Concomitant]
     Dosage: 5 MILLIGRAM
     Route: 065
  4. ACYCLOVIR [Concomitant]
     Dosage: 200 MILLIGRAM
     Route: 065
  5. REVLIMID [Suspect]
     Dosage: 5 MILLIGRAM
     Route: 048
     Dates: start: 20090408, end: 20090429
  6. REVLIMID [Suspect]
  7. AMPHOTERICIN B [Concomitant]
     Dosage: 20 MILLILITER
     Route: 065

REACTIONS (2)
  - LEUKAEMIC INFILTRATION EXTRAMEDULLARY [None]
  - CARDIAC FAILURE [None]
